FAERS Safety Report 6599387-3 (Version None)
Quarter: 2010Q1

REPORT INFORMATION
  Report Type: 
  Country: None (occurrence: None)
  Receive Date: 20100224
  Receipt Date: 20091223
  Transmission Date: 20100710
  Serious: Yes (Hospitalization)
  Sender: FDA-Public Use
  Company Number: A0836745A

PATIENT
  Age: 67 Year
  Sex: Female

DRUGS (1)
  1. ARZERRA [Suspect]
     Dosage: 2000MG UNKNOWN
     Route: 042

REACTIONS (1)
  - INFECTION [None]
